FAERS Safety Report 18577732 (Version 2)
Quarter: 2022Q3

REPORT INFORMATION
  Report Type: Spontaneous
  Country: DE (occurrence: DE)
  Receive Date: 20201204
  Receipt Date: 20220714
  Transmission Date: 20221027
  Serious: Yes (Other)
  Sender: FDA-Public Use
  Company Number: DE-DCGMA-20186744

PATIENT
  Age: 62 Year
  Sex: Male
  Weight: 62 kg

DRUGS (4)
  1. PRAVASTATIN [Suspect]
     Active Substance: PRAVASTATIN
     Indication: Hypercholesterolaemia
     Dosage: 80 MILLIGRAM/ 6 WEEKS
     Route: 048
  2. SIMVASTATIN [Suspect]
     Active Substance: SIMVASTATIN
     Indication: Hypercholesterolaemia
     Dosage: 80 MILLIGRAMS/ 2 MONTHS
     Route: 048
  3. ATORVASTATIN [Suspect]
     Active Substance: ATORVASTATIN
     Indication: Hypercholesterolaemia
     Dosage: 80 MILLIGRAMS/ 4 WEEKS
     Route: 048
  4. EZETIMIBE [Concomitant]
     Active Substance: EZETIMIBE
     Indication: Hypercholesterolaemia
     Dosage: 10 MILLIGRAM/ 4 WEEKS
     Route: 048

REACTIONS (3)
  - Exercise lack of [Not Recovered/Not Resolved]
  - Myalgia [Not Recovered/Not Resolved]
  - Depression [Not Recovered/Not Resolved]
